FAERS Safety Report 15168742 (Version 4)
Quarter: 2018Q3

REPORT INFORMATION
  Report Type: Spontaneous
  Country: GB (occurrence: GB)
  Receive Date: 20180720
  Receipt Date: 20180901
  Transmission Date: 20181010
  Serious: Yes (Hospitalization, Other)
  Sender: FDA-Public Use
  Company Number: GB-AUROBINDO-AUR-APL-2018-036226

PATIENT
  Age: 18 Year
  Sex: Female
  Weight: 35.3 kg

DRUGS (6)
  1. CHLORPHENAMINE [Concomitant]
     Active Substance: CHLORPHENIRAMINE MALEATE
     Dosage: CHLORPHENAMINE 4 MG 4 TIMES PER DAY AS NEEDED
     Route: 065
  2. PREGABALIN. [Suspect]
     Active Substance: PREGABALIN
     Indication: ABDOMINAL PAIN
     Dosage: UNK
     Route: 065
  3. PREGABALIN. [Suspect]
     Active Substance: PREGABALIN
     Indication: PROPHYLAXIS
  4. CHLORPHENAMINE [Concomitant]
     Active Substance: CHLORPHENIRAMINE MALEATE
     Indication: PRODUCT USED FOR UNKNOWN INDICATION
     Dosage: 4 MILLIGRAM EVERY 6 HOURS
     Route: 065
  5. CETIRIZINE [Concomitant]
     Active Substance: CETIRIZINE HYDROCHLORIDE
     Indication: PRODUCT USED FOR UNKNOWN INDICATION
     Dosage: 10 MILLIGRAM, DAILY
     Route: 065
  6. GABAPENTIN. [Suspect]
     Active Substance: GABAPENTIN
     Indication: ANALGESIC THERAPY
     Dosage: UNK
     Route: 065

REACTIONS (5)
  - Abdominal pain [Recovering/Resolving]
  - Disease recurrence [Recovered/Resolved]
  - Diarrhoea [Recovering/Resolving]
  - Eosinophilia [Recovering/Resolving]
  - Eosinophilic colitis [Recovered/Resolved]
